FAERS Safety Report 16403465 (Version 1)
Quarter: 2019Q2

REPORT INFORMATION
  Report Type: Spontaneous
  Country: FR (occurrence: FR)
  Receive Date: 20190607
  Receipt Date: 20190607
  Transmission Date: 20190711
  Serious: Yes (Hospitalization)
  Sender: FDA-Public Use
  Company Number: FR-ACCORD-131536

PATIENT
  Age: 17 Year
  Sex: Male
  Weight: 61 kg

DRUGS (5)
  1. CLOPIXOL [Suspect]
     Active Substance: ZUCLOPENTHIXOL
     Indication: PSYCHOTIC DISORDER
     Dosage: 200 MG / 1 ML, I.M.
     Route: 030
     Dates: start: 20190412
  2. LEPTICUR [Suspect]
     Active Substance: TROPATEPINE HYDROCHLORIDE
     Indication: PARKINSONISM
     Dosage: 10 MG
     Route: 048
     Dates: start: 20190320
  3. LYSANXIA [Suspect]
     Active Substance: PRAZEPAM
     Indication: PSYCHOTIC DISORDER
     Dosage: 15 MG / ML, DEGRESSIVE POSOLOG
     Route: 048
     Dates: start: 20190320
  4. CLOZAPINE. [Suspect]
     Active Substance: CLOZAPINE
     Indication: PSYCHOTIC DISORDER
     Dosage: PROGRESSIVE DOSAGE (UP TO 200MG / DAY)
     Route: 048
     Dates: start: 20190308
  5. CLOPIXOL [Suspect]
     Active Substance: ZUCLOPENTHIXOL
     Indication: PSYCHOTIC DISORDER
     Dosage: 2 PERCENT, DEGRESSIVE POSOLOGY
     Route: 048
     Dates: start: 20190214

REACTIONS (2)
  - Mydriasis [Not Recovered/Not Resolved]
  - Vision blurred [Not Recovered/Not Resolved]

NARRATIVE: CASE EVENT DATE: 20190403
